FAERS Safety Report 5951980-4 (Version None)
Quarter: 2008Q4

REPORT INFORMATION
  Report Type: 
  Country: None (occurrence: None)
  Receive Date: 20081113
  Receipt Date: 20071129
  Transmission Date: 20090506
  Serious: No
  Sender: FDA-Public Use
  Company Number: A0688026A

PATIENT
  Age: 78 Year
  Sex: Male

DRUGS (3)
  1. COREG [Suspect]
     Indication: ATRIAL FIBRILLATION
     Dosage: 6.25MG TWICE PER DAY
     Route: 048
     Dates: start: 20040101
  2. COUMADIN [Concomitant]
  3. TOPROL-XL [Concomitant]

REACTIONS (3)
  - DRUG INEFFECTIVE [None]
  - ERECTILE DYSFUNCTION [None]
  - HEART RATE INCREASED [None]
